FAERS Safety Report 8128164-7 (Version None)
Quarter: 2011Q4

REPORT INFORMATION
  Report Type: 
  Country: None (occurrence: None)
  Receive Date: 20111227
  Receipt Date: 20110915
  Transmission Date: 20120403
  Serious: No
  Sender: FDA-Public Use
  Company Number: PHHY2011US62846

PATIENT
  Age: 48 Year
  Sex: Female

DRUGS (4)
  1. LISINOPRIL [Concomitant]
  2. GILENYA [Suspect]
     Indication: RELAPSING-REMITTING MULTIPLE SCLEROSIS
     Dosage: 0.5 MG, QD, ORAL
     Route: 048
     Dates: start: 20110523
  3. FAMPRIDINE (FAMPRIDINE) [Concomitant]
  4. CITALOPRAM HYDROBROMIDE [Concomitant]

REACTIONS (7)
  - FALL [None]
  - ARTHRALGIA [None]
  - GAIT DISTURBANCE [None]
  - EYE DISORDER [None]
  - HYPOKINESIA [None]
  - DRUG INEFFECTIVE [None]
  - CONTUSION [None]
